FAERS Safety Report 6608671-6 (Version None)
Quarter: 2010Q1

REPORT INFORMATION
  Report Type: 
  Country: None (occurrence: None)
  Receive Date: 20100301
  Receipt Date: 20100219
  Transmission Date: 20100710
  Serious: Yes (Other)
  Sender: FDA-Public Use
  Company Number: US-BAYER-200912150NA

PATIENT
  Age: 22 Year
  Sex: Female

DRUGS (1)
  1. MIRENA [Suspect]
     Indication: GENITAL HAEMORRHAGE
     Dosage: CONTINUOUS
     Route: 015
     Dates: start: 20080501

REACTIONS (12)
  - ABDOMINAL PAIN [None]
  - ABDOMINAL PAIN UPPER [None]
  - ADNEXA UTERI PAIN [None]
  - BACK PAIN [None]
  - DEFAECATION URGENCY [None]
  - DEVICE DISLOCATION [None]
  - MENSTRUATION IRREGULAR [None]
  - NAUSEA [None]
  - OVARIAN CYST [None]
  - RENAL FUSION ANOMALY [None]
  - VAGINAL DISCHARGE [None]
  - VAGINAL HAEMORRHAGE [None]
